FAERS Safety Report 13633662 (Version 1)
Quarter: 2017Q2

REPORT INFORMATION
  Report Type: Spontaneous
  Country: US (occurrence: US)
  Receive Date: 20170531
  Receipt Date: 20170531
  Transmission Date: 20170830
  Serious: No
  Sender: FDA-Public Use
  Company Number: US-ASTELLAS-1566393

PATIENT
  Sex: Female

DRUGS (4)
  1. TARCEVA [Suspect]
     Active Substance: ERLOTINIB HYDROCHLORIDE
     Route: 048
  2. CARDIZEM [Concomitant]
     Active Substance: DILTIAZEM HYDROCHLORIDE
  3. TARCEVA [Suspect]
     Active Substance: ERLOTINIB HYDROCHLORIDE
     Indication: LUNG NEOPLASM MALIGNANT
     Route: 048
  4. TARCEVA [Suspect]
     Active Substance: ERLOTINIB HYDROCHLORIDE
     Route: 048
     Dates: start: 20150318, end: 20150408

REACTIONS (16)
  - Rash [Unknown]
  - Ageusia [Unknown]
  - Peripheral swelling [Unknown]
  - Joint swelling [Unknown]
  - Arthralgia [Unknown]
  - Joint crepitation [Unknown]
  - Burning sensation [Unknown]
  - Urticaria [Unknown]
  - Blister [Unknown]
  - Eyelid oedema [Unknown]
  - Tongue discomfort [Unknown]
  - Madarosis [Unknown]
  - Furuncle [Unknown]
  - Skin exfoliation [Unknown]
  - Acne [Unknown]
  - Nasal ulcer [Unknown]
